FAERS Safety Report 4506317-4 (Version None)
Quarter: 2004Q4

REPORT INFORMATION
  Report Type: 
  Country: None (occurrence: None)
  Receive Date: 20041025
  Receipt Date: 20040121
  Transmission Date: 20050328
  Serious: Yes (Hospitalization)
  Sender: FDA-Public Use
  Company Number: US-JNJFOC-20031105220

PATIENT
  Age: 50 Year
  Sex: Male
  Weight: 64.8644 kg

DRUGS (7)
  1. REMICADE [Suspect]
     Indication: CROHN'S DISEASE
     Dosage: SEE IMAGE
     Route: 042
     Dates: start: 20011001, end: 20020801
  2. REMICADE [Suspect]
     Indication: CROHN'S DISEASE
     Dosage: SEE IMAGE
     Route: 042
     Dates: start: 20020401, end: 20030928
  3. PENTASA [Concomitant]
  4. QUESTRAN [Concomitant]
  5. DARVOCET [Concomitant]
  6. NASCOBAL (CYANOCOBALAMIN) [Concomitant]
  7. VITAMIN B12 [Concomitant]

REACTIONS (1)
  - HISTOPLASMOSIS [None]
